FAERS Safety Report 20044181 (Version 1)
Quarter: 2021Q4

REPORT INFORMATION
  Report Type: Spontaneous
  Country: US (occurrence: None)
  Receive Date: 20211108
  Receipt Date: 20211108
  Transmission Date: 20220303
  Serious: Yes (Other)
  Sender: FDA-Public Use
  Company Number: US-Hikma Pharmaceuticals USA Inc.-US-H14001-21-04801

PATIENT
  Age: 54 Year
  Sex: Male

DRUGS (10)
  1. HEPARIN [Suspect]
     Active Substance: HEPARIN SODIUM
     Indication: Atrial flutter
     Dosage: UNKNOWN
     Route: 042
  2. AMIODARONE [Suspect]
     Active Substance: AMIODARONE
     Indication: Atrial flutter
     Route: 040
  3. AMIODARONE [Suspect]
     Active Substance: AMIODARONE
     Dosage: 1 MG/MIN
     Route: 041
  4. AMIODARONE [Suspect]
     Active Substance: AMIODARONE
     Dosage: 0.5 MG/MIN
     Route: 041
  5. ASPIRIN [Suspect]
     Active Substance: ASPIRIN
     Indication: Thrombosis prophylaxis
     Route: 065
  6. CLOPIDOGREL [Suspect]
     Active Substance: CLOPIDOGREL BISULFATE
     Indication: Thrombosis prophylaxis
     Route: 065
  7. APIXABAN [Suspect]
     Active Substance: APIXABAN
     Indication: Thrombosis prophylaxis
     Route: 065
  8. AMIODARONE [Suspect]
     Active Substance: AMIODARONE
     Indication: Thrombosis prophylaxis
     Dosage: UNKNOWN
     Route: 048
  9. MILRINONE [Concomitant]
     Active Substance: MILRINONE
     Indication: Cardiogenic shock
     Dosage: UNKNOWN
     Route: 041
  10. NOREPINEPHRINE [Concomitant]
     Active Substance: NOREPINEPHRINE
     Indication: Cardiogenic shock
     Dosage: UNKNOWN
     Route: 041

REACTIONS (1)
  - Pericardial effusion [Recovered/Resolved]
